FAERS Safety Report 15099547 (Version 3)
Quarter: 2018Q4

REPORT INFORMATION
  Report Type: Spontaneous
  Country: DE (occurrence: DE)
  Receive Date: 20180702
  Receipt Date: 20181009
  Transmission Date: 20190204
  Serious: No
  Sender: FDA-Public Use
  Company Number: DE-ALLERGAN-1832845US

PATIENT
  Age: 45 Year
  Sex: Male

DRUGS (1)
  1. CEFTAZIDIME;AVIBACTAM - BP [Suspect]
     Active Substance: AVIBACTAM SODIUM\CEFTAZIDIME
     Indication: PRODUCT USED FOR UNKNOWN INDICATION
     Dosage: 2/0.5 G, TID
     Route: 065

REACTIONS (1)
  - No adverse event [Unknown]
